FAERS Safety Report 4712698-9 (Version None)
Quarter: 2005Q3

REPORT INFORMATION
  Report Type: 
  Country: None (occurrence: None)
  Receive Date: 20050707
  Receipt Date: 20050603
  Transmission Date: 20060218
  Serious: Yes (Other)
  Sender: FDA-Public Use
  Company Number: 2005062488

PATIENT
  Age: 72 Year
  Sex: Male
  Weight: 83.9154 kg

DRUGS (5)
  1. CAVERJECT [Suspect]
     Indication: ILL-DEFINED DISORDER
     Dosage: UNKNOWN (10 MCG), UNKNOWN
     Route: 065
  2. BENAZEPRIL HCL [Concomitant]
  3. TERAZOSIN HYDROCHLORIDE [Concomitant]
  4. ATORVASTATIN CALCIUM [Concomitant]
  5. MULTIVITAMINS (ASCORBIC ACID, ERGOCALCIFEROL, FOLIC ACID, NICOTINAMIDE [Concomitant]

REACTIONS (2)
  - DRUG INEFFECTIVE [None]
  - ERECTION INCREASED [None]
